FAERS Safety Report 20461811 (Version 1)
Quarter: 2022Q1

REPORT INFORMATION
  Report Type: Spontaneous
  Country: US (occurrence: None)
  Receive Date: 20220211
  Receipt Date: 20220211
  Transmission Date: 20220424
  Serious: Yes (Hospitalization)
  Sender: FDA-Public Use
  Company Number: None

PATIENT
  Age: 96 Year
  Sex: Female

DRUGS (3)
  1. SOTROVIMAB [Suspect]
     Active Substance: SOTROVIMAB
     Indication: COVID-19
     Dosage: OTHER FREQUENCY : ONCE;?
     Route: 042
     Dates: start: 20220128, end: 20220128
  2. glimepiride (AMARYL) 2 mg tablet [Concomitant]
  3. indapamide (LOZOL) 1.25 mg tablet [Concomitant]

REACTIONS (4)
  - Urinary tract infection [None]
  - Dysuria [None]
  - Asthenia [None]
  - COVID-19 [None]

NARRATIVE: CASE EVENT DATE: 20220206
